FAERS Safety Report 7307727-2 (Version None)
Quarter: 2011Q1

REPORT INFORMATION
  Report Type: 
  Country: None (occurrence: None)
  Receive Date: 20110209
  Receipt Date: 20110124
  Transmission Date: 20110831
  Serious: Yes (Death)
  Sender: FDA-Public Use
  Company Number: 2011S1000039

PATIENT
  Age: 54 Year
  Sex: Female

DRUGS (2)
  1. ROXICODONE [Suspect]
     Dosage: ;PO
     Route: 048
     Dates: end: 20090101
  2. CARBON MONOXIDE [Suspect]
     Dosage: ;INH
     Route: 055
     Dates: end: 20090101

REACTIONS (4)
  - CARDIAC ARREST [None]
  - THERMAL BURN [None]
  - RESPIRATORY ARREST [None]
  - CARBON MONOXIDE POISONING [None]
